FAERS Safety Report 7072405-4 (Version None)
Quarter: 2010Q4

REPORT INFORMATION
  Report Type: 
  Country: None (occurrence: None)
  Receive Date: 20101029
  Receipt Date: 20100122
  Transmission Date: 20110411
  Serious: No
  Sender: FDA-Public Use
  Company Number: A0841006A

PATIENT
  Age: 76 Year
  Sex: Female

DRUGS (8)
  1. ADVAIR DISKUS 100/50 [Suspect]
     Indication: CHRONIC OBSTRUCTIVE PULMONARY DISEASE
     Dosage: 100MCG TWICE PER DAY
     Route: 055
     Dates: start: 20100122
  2. ISOSORBIDE DINITRATE [Concomitant]
  3. TOPROL-XL [Concomitant]
  4. CADUET [Concomitant]
  5. PLAVIX [Concomitant]
  6. STARLIX [Concomitant]
  7. JANUVIA [Concomitant]
  8. ASPIRIN [Concomitant]

REACTIONS (2)
  - BLOOD GLUCOSE INCREASED [None]
  - DYSPHONIA [None]
